FAERS Safety Report 9285148 (Version 3)
Quarter: 2013Q3

REPORT INFORMATION
  Report Type: Spontaneous
  Country: US (occurrence: US)
  Receive Date: 20130513
  Receipt Date: 20130916
  Transmission Date: 20140515
  Serious: Yes (Life-Threatening, Hospitalization, Other)
  Sender: FDA-Public Use
  Company Number: US-JNJFOC-20130417607

PATIENT
  Age: 67 Year
  Sex: Male
  Weight: 72.58 kg

DRUGS (11)
  1. XARELTO [Suspect]
     Indication: ANTICOAGULANT THERAPY
     Route: 048
     Dates: start: 20121217
  2. WARFARIN [Suspect]
     Indication: ANTICOAGULANT THERAPY
     Route: 048
     Dates: start: 2013
  3. FINASTERIDE [Concomitant]
     Indication: PROSTATIC DISORDER
     Dosage: IN AM
     Route: 065
     Dates: start: 2010
  4. RAPAFLO [Concomitant]
     Indication: PROSTATIC DISORDER
     Dosage: PM
     Route: 065
  5. ISOSORBIDE MONONITRATE [Concomitant]
     Indication: ANGINA PECTORIS
     Dosage: AM
     Route: 048
  6. ROSUVASTATIN CALCIUM [Concomitant]
     Indication: BLOOD CHOLESTEROL INCREASED
     Dosage: AM
     Route: 048
  7. IRON [Concomitant]
     Indication: PRODUCT USED FOR UNKNOWN INDICATION
     Dosage: AM
     Route: 048
  8. CARVEDILOL [Concomitant]
     Indication: HYPERTENSION
     Dosage: AM-PM
     Route: 048
  9. TIKOSYN [Concomitant]
     Indication: ATRIAL FIBRILLATION
     Route: 048
  10. FISH OIL [Concomitant]
     Dosage: IN AM
     Route: 065
  11. OMEPRAZOLE [Concomitant]
     Dosage: AM
     Route: 065

REACTIONS (14)
  - Stress [Recovered/Resolved]
  - Bone pain [Recovered/Resolved]
  - Cardiac arrest [Not Recovered/Not Resolved]
  - Bone marrow disorder [Recovered/Resolved]
  - Hospitalisation [Unknown]
  - Pyrexia [Recovered/Resolved]
  - Pain [Recovered/Resolved]
  - Headache [Recovered/Resolved]
  - Abnormal loss of weight [Recovered/Resolved]
  - Asthenia [Recovered/Resolved]
  - Hypotonia [Not Recovered/Not Resolved]
  - Feeling abnormal [Recovered/Resolved]
  - Eating disorder [Recovered/Resolved]
  - Decreased appetite [Recovered/Resolved]
